FAERS Safety Report 11694261 (Version 2)
Quarter: 2016Q1

REPORT INFORMATION
  Report Type: Spontaneous
  Country: TR (occurrence: TR)
  Receive Date: 20151103
  Receipt Date: 20160218
  Transmission Date: 20160525
  Serious: Yes (Other)
  Sender: FDA-Public Use
  Company Number: TR-IMPAX LABORATORIES, INC-2015-IPXL-01080

PATIENT
  Sex: Female
  Weight: 3.18 kg

DRUGS (1)
  1. LAMOTRIGINE ODT [Suspect]
     Active Substance: LAMOTRIGINE
     Indication: PRODUCT USED FOR UNKNOWN INDICATION
     Dosage: UNK
     Route: 064

REACTIONS (4)
  - Pulmonary hypertension [Unknown]
  - Ventricular septal defect [Unknown]
  - Coarctation of the aorta [Unknown]
  - Foetal exposure during pregnancy [Unknown]
